FAERS Safety Report 8244292-X (Version None)
Quarter: 2012Q1

REPORT INFORMATION
  Report Type: 
  Country: None (occurrence: None)
  Receive Date: 20120329
  Receipt Date: 20120323
  Transmission Date: 20120608
  Serious: Yes (Death, Other)
  Sender: FDA-Public Use
  Company Number: FR-PFIZER INC-2011229734

PATIENT
  Age: 57 Year
  Sex: Male
  Weight: 95 kg

DRUGS (8)
  1. MICARDIS [Concomitant]
     Indication: HYPERTENSION
     Dosage: 80
     Route: 048
  2. ATORVASTATIN [Concomitant]
     Indication: HYPERTENSION
     Dosage: UNK
     Route: 048
  3. ASPIRIN [Concomitant]
     Indication: HYPERTENSION
     Dosage: 75 MG, 1X/DAY
     Route: 048
  4. LYRICA [Suspect]
     Dosage: 100 MG, 2X/DAY
  5. LYRICA [Suspect]
     Dosage: 200 MG, 2X/DAY
  6. AMLODIPINE BESYLATE [Concomitant]
     Indication: HYPERTENSION
     Dosage: UNK
     Route: 048
  7. LYRICA [Suspect]
     Indication: BACK PAIN
     Dosage: 50 MG, 2X/DAY
     Dates: start: 20110425
  8. HYDROCHLOROTHIAZIDE [Concomitant]
     Indication: HYPERTENSION
     Dosage: 12.5
     Route: 048

REACTIONS (7)
  - BULIMIA NERVOSA [None]
  - ASPHYXIA [None]
  - PATHOLOGICAL GAMBLING [None]
  - COMPLETED SUICIDE [None]
  - REGRESSIVE BEHAVIOUR [None]
  - ERECTILE DYSFUNCTION [None]
  - ARTHRALGIA [None]
